FAERS Safety Report 4557723-3 (Version None)
Quarter: 2005Q1

REPORT INFORMATION
  Report Type: 
  Country: None (occurrence: None)
  Receive Date: 20050118
  Receipt Date: 20050113
  Transmission Date: 20050727
  Serious: Yes (Other)
  Sender: FDA-Public Use
  Company Number: THQ2005A00019

PATIENT
  Sex: 0

DRUGS (2)
  1. LANSOPRAZOLE [Suspect]
  2. SIMVASTATIN (SIMVASTATIN) (UNKNOWN) [Suspect]

REACTIONS (3)
  - DRUG INTERACTION [None]
  - JAUNDICE CHOLESTATIC [None]
  - LIVER FUNCTION TEST ABNORMAL [None]
